FAERS Safety Report 9467441 (Version 3)
Quarter: 2013Q4

REPORT INFORMATION
  Report Type: Spontaneous
  Country: US (occurrence: US)
  Receive Date: 20130821
  Receipt Date: 20131030
  Transmission Date: 20140711
  Serious: Yes (Life-Threatening, Other)
  Sender: FDA-Public Use
  Company Number: PHEH2013US017575

PATIENT
  Sex: Female

DRUGS (16)
  1. DIOVAN [Suspect]
     Dosage: UNK UKN, UNK
     Dates: start: 2000
  2. DIOVAN [Suspect]
     Dosage: 160 MG, UNK
  3. DIOVAN [Suspect]
     Dosage: 80 MG, BID
  4. VALSARTAN [Suspect]
     Dosage: 50 MG, BID
     Dates: start: 201305
  5. VALSARTAN [Suspect]
     Dosage: 0.5 DF (25MG) BID
  6. VALSARTAN [Suspect]
     Dosage: 25 MG, QD
  7. HYDROCHLOROTHIAZIDE,VALSARTAN [Suspect]
     Dosage: UNK UKN, UNK
  8. METFORMIN [Suspect]
     Dosage: UNK UKN, UNK
  9. LOSARTAN [Suspect]
     Dosage: UNK UKN, UNK
  10. ACE INHIBITOR NOS [Suspect]
     Dosage: UNK UKN, UNK
  11. GLYBURIDE [Concomitant]
     Dosage: UNK UKN, UNK
  12. SYNTHROID [Concomitant]
     Dosage: 1 MG, UNK
  13. NITROFURANTOIN [Concomitant]
     Indication: URINARY TRACT DISORDER
     Dosage: 50 MG, QD (BEDTIME)
  14. MINOCYCLIN [Concomitant]
  15. LORAZEPAM [Concomitant]
  16. TRAZODONE [Concomitant]

REACTIONS (18)
  - Apparent death [Unknown]
  - Migraine with aura [Unknown]
  - Visual impairment [Unknown]
  - Vision blurred [Unknown]
  - Malaise [Unknown]
  - Headache [Unknown]
  - Asthenia [Unknown]
  - Nausea [Unknown]
  - Convulsion [Unknown]
  - Hypoglycaemia [Unknown]
  - Gait disturbance [Unknown]
  - Feeling abnormal [Unknown]
  - Dehydration [Unknown]
  - Paranasal sinus hypersecretion [Unknown]
  - Dyspnoea [Unknown]
  - Cough [Unknown]
  - Blood pressure fluctuation [Unknown]
  - Hypersensitivity [Unknown]
